FAERS Safety Report 11071976 (Version 1)
Quarter: 2015Q2

REPORT INFORMATION
  Report Type: Spontaneous
  Country: US (occurrence: US)
  Receive Date: 20150428
  Receipt Date: 20150428
  Transmission Date: 20150821
  Serious: No
  Sender: FDA-Public Use
  Company Number: US-BAUSCH-BL-2014-003182

PATIENT
  Age: 50 Year
  Sex: Female
  Weight: 59.02 kg

DRUGS (1)
  1. ALREX [Suspect]
     Active Substance: LOTEPREDNOL ETABONATE
     Indication: DRY EYE
     Route: 061
     Dates: start: 201406, end: 201406

REACTIONS (5)
  - Dry eye [Unknown]
  - Hypersensitivity [Unknown]
  - Eye swelling [Unknown]
  - Eye irritation [Unknown]
  - Off label use [Unknown]

NARRATIVE: CASE EVENT DATE: 201406
